FAERS Safety Report 10228022 (Version 1)
Quarter: 2014Q2

REPORT INFORMATION
  Report Type: Spontaneous
  Country: US (occurrence: None)
  Receive Date: 20140609
  Receipt Date: 20140609
  Transmission Date: 20141212
  Serious: No
  Sender: FDA-Public Use
  Company Number: None

PATIENT
  Age: 58 Year
  Sex: Female
  Weight: 90.72 kg

DRUGS (1)
  1. CROMOLYN SODIUM [Suspect]
     Indication: SYSTEMIC MASTOCYTOSIS
     Dates: start: 20140521, end: 20140601

REACTIONS (9)
  - Diarrhoea [None]
  - Cystitis interstitial [None]
  - Asthenia [None]
  - Nausea [None]
  - Fatigue [None]
  - Malaise [None]
  - Unevaluable event [None]
  - Malaise [None]
  - Influenza like illness [None]
